FAERS Safety Report 8224236-7 (Version None)
Quarter: 2012Q1

REPORT INFORMATION
  Report Type: 
  Country: None (occurrence: None)
  Receive Date: 20120321
  Receipt Date: 20120316
  Transmission Date: 20120608
  Serious: Yes (Other)
  Sender: FDA-Public Use
  Company Number: US-BAYER-2012-026521

PATIENT
  Age: 34 Year
  Sex: Female

DRUGS (2)
  1. DROSPIRENONE AND ETHINYL ESTRADIOL [Suspect]
     Dosage: UNK
     Route: 048
     Dates: start: 20031031, end: 20100325
  2. YASMIN [Suspect]
     Dosage: UNK
     Route: 048
     Dates: start: 20031031, end: 20100325

REACTIONS (4)
  - DEEP VEIN THROMBOSIS [None]
  - DYSPNOEA [None]
  - INJURY [None]
  - PAIN IN EXTREMITY [None]
